FAERS Safety Report 20586346 (Version 1)
Quarter: 2022Q1

REPORT INFORMATION
  Report Type: Spontaneous
  Country: US (occurrence: US)
  Receive Date: 20220313
  Receipt Date: 20220313
  Transmission Date: 20220423
  Serious: Yes (Hospitalization, Other)
  Sender: FDA-Public Use
  Company Number: US-MannKind Corporation-2022MK000043

PATIENT
  Age: 56 Year
  Sex: Female
  Weight: 62.652 kg

DRUGS (8)
  1. AFREZZA [Suspect]
     Active Substance: INSULIN HUMAN
     Indication: Type 1 diabetes mellitus
     Dates: start: 2019, end: 202112
  2. TOUJEO [Concomitant]
     Active Substance: INSULIN GLARGINE
     Indication: Type 1 diabetes mellitus
     Route: 058
     Dates: start: 2009
  3. TOUJEO [Concomitant]
     Active Substance: INSULIN GLARGINE
     Route: 058
     Dates: start: 2009
  4. NOVOLOG [Concomitant]
     Active Substance: INSULIN ASPART
     Indication: Type 1 diabetes mellitus
     Dosage: 10 OR MORE UNITS DEPENDING ON BLOOD GLUCOSE LEVELS
  5. METFORMIN [Concomitant]
     Active Substance: METFORMIN HYDROCHLORIDE
     Indication: Type 1 diabetes mellitus
     Route: 048
     Dates: start: 2020
  6. GABAPENTIN [Concomitant]
     Active Substance: GABAPENTIN
     Indication: Neuralgia
  7. RAMIPRIL [Concomitant]
     Active Substance: RAMIPRIL
     Indication: Renal disorder prophylaxis
     Route: 048
  8. VITAMIN D [Concomitant]
     Active Substance: VITAMIN D NOS
     Indication: Vitamin supplementation
     Route: 048

REACTIONS (2)
  - Blood glucose increased [Recovered/Resolved]
  - COVID-19 [Unknown]
